FAERS Safety Report 4891210-8 (Version None)
Quarter: 2006Q1

REPORT INFORMATION
  Report Type: 
  Country: None (occurrence: None)
  Receive Date: 20060125
  Receipt Date: 20060121
  Transmission Date: 20060701
  Serious: Yes (Other)
  Sender: FDA-Public Use
  Company Number: 2006001220

PATIENT
  Sex: Male
  Weight: 90 kg

DRUGS (3)
  1. AVANDAMET [Suspect]
     Dosage: 50TAB SINGLE DOSE
     Route: 048
  2. IBUPROFEN [Suspect]
     Dosage: 50TAB SINGLE DOSE
     Route: 048
  3. NOVALGIN [Suspect]
     Dosage: 25TAB SINGLE DOSE
     Route: 048

REACTIONS (4)
  - DIARRHOEA [None]
  - INTENTIONAL OVERDOSE [None]
  - SUICIDE ATTEMPT [None]
  - VOMITING [None]
